FAERS Safety Report 5067260-8 (Version None)
Quarter: 2006Q3

REPORT INFORMATION
  Report Type: 
  Country: None (occurrence: None)
  Receive Date: 20060727
  Receipt Date: 20060714
  Transmission Date: 20061208
  Serious: Yes (Hospitalization)
  Sender: FDA-Public Use
  Company Number: 14438

PATIENT
  Age: 62 Year
  Sex: Male

DRUGS (11)
  1. PACLITAXEL [Suspect]
     Indication: NON-SMALL CELL LUNG CANCER
     Dosage: 396 MG IV
     Route: 042
     Dates: start: 20060525
  2. CARBOPLATIN [Suspect]
     Indication: NON-SMALL CELL LUNG CANCER
     Dosage: 546 MG FREQ IV
     Route: 042
     Dates: start: 20060525
  3. TIOTROPIUM [Concomitant]
  4. PLUSVENT [Concomitant]
  5. FUORSEMIDE [Concomitant]
  6. CP-751, 871 [Suspect]
     Indication: NON-SMALL CELL LUNG CANCER
     Dosage: 880 MG
     Dates: start: 20060525
  7. POTASSIUM [Concomitant]
  8. METAMIZOLE [Concomitant]
  9. ACETAMINOPHEN [Concomitant]
  10. OMEPRAZOLE [Concomitant]
  11. LORAZEPAM [Concomitant]

REACTIONS (4)
  - CHEST PAIN [None]
  - PURPURA [None]
  - PYREXIA [None]
  - RESPIRATORY FAILURE [None]
